FAERS Safety Report 6078705-9 (Version None)
Quarter: 2009Q1

REPORT INFORMATION
  Report Type: 
  Country: None (occurrence: None)
  Receive Date: 20090216
  Receipt Date: 20090206
  Transmission Date: 20090719
  Serious: Yes (Other)
  Sender: FDA-Public Use
  Company Number: FR-AMGEN-US331470

PATIENT
  Age: 62 Year
  Sex: Female

DRUGS (5)
  1. ENBREL [Suspect]
     Indication: RHEUMATOID ARTHRITIS
     Dosage: UNKNOWN
     Route: 058
     Dates: start: 20080501, end: 20090101
  2. METHOTREXATE [Concomitant]
     Indication: RHEUMATOID ARTHRITIS
     Dosage: UNKNOWN
     Route: 048
  3. METHOTREXATE [Concomitant]
     Dosage: 12.5 MG TOTAL WEEKLY
     Route: 048
  4. METHOTREXATE [Concomitant]
     Dosage: 7.5 MG TOTAL WEEKLY
     Route: 048
  5. CORTICOSTEROID NOS [Concomitant]

REACTIONS (6)
  - CONDITION AGGRAVATED [None]
  - CONJUNCTIVITIS [None]
  - EYE INFECTION [None]
  - PHOTOPHOBIA [None]
  - SJOGREN'S SYNDROME [None]
  - SUPERINFECTION [None]
